FAERS Safety Report 8099403-6 (Version None)
Quarter: 2012Q1

REPORT INFORMATION
  Report Type: 
  Country: None (occurrence: None)
  Receive Date: 20120129
  Receipt Date: 20111006
  Transmission Date: 20120608
  Serious: No
  Sender: FDA-Public Use
  Company Number: US-ABBOTT-11P-163-0861610-00

PATIENT
  Sex: Female
  Weight: 77.18 kg

DRUGS (4)
  1. GEMFIBROZIL [Concomitant]
     Indication: BLOOD CHOLESTEROL INCREASED
  2. HUMIRA [Suspect]
     Indication: RHEUMATOID ARTHRITIS
     Dates: start: 20110929
  3. JANUMET [Concomitant]
     Indication: TYPE 2 DIABETES MELLITUS
  4. TYLENOL PM [Concomitant]
     Indication: INSOMNIA

REACTIONS (2)
  - MIGRAINE [None]
  - RETCHING [None]
